FAERS Safety Report 10637343 (Version 1)
Quarter: 2014Q4

REPORT INFORMATION
  Report Type: Spontaneous
  Country: US (occurrence: None)
  Receive Date: 20141121
  Receipt Date: 20141121
  Transmission Date: 20150529
  Serious: No
  Sender: FDA-Public Use
  Company Number: 163-10004-14092320

PATIENT
  Age: 42 Year
  Sex: Female
  Weight: 122.47 kg

DRUGS (18)
  1. VOLTAREN(DICLOFENAC SODIUM)(GEL) [Concomitant]
  2. JANUVIA(SITAGLIPTIN PHOSPHATE) [Concomitant]
  3. GLIMEPIRIDE(GLIEMEPIRIDE) [Concomitant]
  4. LORAZEPAM. [Concomitant]
     Active Substance: LORAZEPAM
  5. LANTUS [Concomitant]
     Active Substance: INSULIN GLARGINE
  6. PREDNISONE. [Concomitant]
     Active Substance: PREDNISONE
  7. HUMIRA(ADALIMUMAB) [Concomitant]
  8. OTEZLA [Suspect]
     Active Substance: APREMILAST
     Indication: PSORIATIC ARTHROPATHY
     Dosage: STARTER PACK
     Route: 048
     Dates: start: 20140904, end: 20140905
  9. DICYCLOMINE(ALKALITE D) [Concomitant]
  10. CLOBETASOL [Concomitant]
     Active Substance: CLOBETASOL
  11. MORPHINE(MORPHINE) [Concomitant]
  12. VERAPAMIL [Concomitant]
     Active Substance: VERAPAMIL HYDROCHLORIDE
  13. COMPAZINE(PROCHLORPERAZINE EDISYLATE) [Concomitant]
  14. OXY.APAP(OXYCOCET) [Concomitant]
  15. SERTRALINE [Concomitant]
     Active Substance: SERTRALINE HYDROCHLORIDE
  16. LISINOPRIL. [Concomitant]
     Active Substance: LISINOPRIL
  17. OMEPRAZOLE. [Concomitant]
     Active Substance: OMEPRAZOLE
  18. MVT (MULTIVITAMINS [Concomitant]

REACTIONS (2)
  - Diarrhoea [None]
  - Nausea [None]

NARRATIVE: CASE EVENT DATE: 20140904
